FAERS Safety Report 16068532 (Version 2)
Quarter: 2019Q2

REPORT INFORMATION
  Report Type: Spontaneous
  Country: US (occurrence: US)
  Receive Date: 20190313
  Receipt Date: 20190506
  Transmission Date: 20190711
  Serious: Yes (Other)
  Sender: FDA-Public Use
  Company Number: US-CELGENEUS-USA-20190105683

PATIENT
  Sex: Female

DRUGS (1)
  1. REVLIMID [Suspect]
     Active Substance: LENALIDOMIDE
     Indication: PLASMA CELL MYELOMA
     Dosage: 5 MILLIGRAM
     Route: 048
     Dates: start: 20181222

REACTIONS (8)
  - Ageusia [Unknown]
  - Poor quality sleep [Unknown]
  - Constipation [Unknown]
  - Dry skin [Unknown]
  - Skin exfoliation [Unknown]
  - Dysgeusia [Unknown]
  - Fatigue [Unknown]
  - Taste disorder [Unknown]
